FAERS Safety Report 5089423-8 (Version None)
Quarter: 2006Q3

REPORT INFORMATION
  Report Type: 
  Country: None (occurrence: None)
  Receive Date: 20060727
  Receipt Date: 20060512
  Transmission Date: 20061208
  Serious: Yes (Other)
  Sender: FDA-Public Use
  Company Number: 2006064619

PATIENT
  Age: 53 Year
  Sex: Female
  Weight: 104.3273 kg

DRUGS (7)
  1. LYRICA [Suspect]
     Indication: NEURALGIA
     Dosage: 50 MG (50 MG, 1 IN 1 D)
     Dates: start: 20060507, end: 20060509
  2. MS CONTIN [Concomitant]
  3. ZOLOFT [Concomitant]
  4. WELLBUTRIN [Concomitant]
  5. RANITIDINE [Concomitant]
  6. TRAZODONE HCL [Concomitant]
  7. ESTRADIOL [Concomitant]

REACTIONS (5)
  - DRUG INEFFECTIVE [None]
  - HYPERSENSITIVITY [None]
  - STOMATITIS [None]
  - SWELLING FACE [None]
  - VISION BLURRED [None]
